FAERS Safety Report 24091114 (Version 1)
Quarter: 2024Q3

REPORT INFORMATION
  Report Type: Spontaneous
  Country: US (occurrence: None)
  Receive Date: 20240713
  Receipt Date: 20240713
  Transmission Date: 20241016
  Serious: Yes (Hospitalization, Disabling)
  Sender: Public
  Company Number: None

PATIENT
  Age: 37 Year
  Sex: Female
  Weight: 69.75 kg

DRUGS (4)
  1. BOTOX [Suspect]
     Active Substance: ONABOTULINUMTOXINA
     Indication: Skin wrinkling
     Dates: start: 20240705
  2. Litfulo [Concomitant]
  3. METOPROLOL [Concomitant]
     Active Substance: METOPROLOL
  4. ARMOUR THYROID [Concomitant]

REACTIONS (11)
  - Arthritis [None]
  - Arthralgia [None]
  - Muscle spasms [None]
  - Arthralgia [None]
  - Pain in extremity [None]
  - Arthralgia [None]
  - Pain in extremity [None]
  - Autoimmune disorder [None]
  - C-reactive protein increased [None]
  - Gait inability [None]
  - Impaired driving ability [None]

NARRATIVE: CASE EVENT DATE: 20240705
